FAERS Safety Report 7822284-X (Version None)
Quarter: 2011Q4

REPORT INFORMATION
  Report Type: 
  Country: None (occurrence: None)
  Receive Date: 20111018
  Receipt Date: 20110427
  Transmission Date: 20120403
  Serious: No
  Sender: FDA-Public Use
  Company Number: US-ASTRAZENECA-2011SE25199

PATIENT
  Age: 64 Year
  Sex: Male

DRUGS (2)
  1. ALLOPURINOL [Concomitant]
     Indication: GOUT
  2. SYMBICORT [Suspect]
     Route: 055
     Dates: start: 20110411

REACTIONS (4)
  - APHONIA [None]
  - DYSPHONIA [None]
  - INSOMNIA [None]
  - ABDOMINAL DISCOMFORT [None]
